FAERS Safety Report 14452611 (Version 1)
Quarter: 2018Q1

REPORT INFORMATION
  Report Type: Spontaneous
  Country: GB (occurrence: GB)
  Receive Date: 20180129
  Receipt Date: 20180129
  Transmission Date: 20180509
  Serious: Yes (Other)
  Sender: FDA-Public Use
  Company Number: PHHY2011GB097998

PATIENT
  Age: 56 Year
  Sex: Female
  Weight: 60 kg

DRUGS (3)
  1. VERAPAMIL [Suspect]
     Active Substance: VERAPAMIL HYDROCHLORIDE
     Dosage: 480 MG, QD
     Route: 065
  2. BISOPROLOL [Suspect]
     Active Substance: BISOPROLOL
     Indication: PRODUCT USED FOR UNKNOWN INDICATION
     Route: 065
  3. VERAPAMIL [Suspect]
     Active Substance: VERAPAMIL HYDROCHLORIDE
     Indication: PRODUCT USED FOR UNKNOWN INDICATION
     Dosage: 28 DF, UNK
     Route: 065

REACTIONS (9)
  - Bradycardia [Unknown]
  - Somnolence [Unknown]
  - Sinus bradycardia [Unknown]
  - Nodal rhythm [Unknown]
  - Overdose [Unknown]
  - Dizziness [Unknown]
  - Labelled drug-drug interaction medication error [Unknown]
  - Blood pressure decreased [Unknown]
  - Confusional state [Unknown]

NARRATIVE: CASE EVENT DATE: 20170909
